FAERS Safety Report 4613345-7 (Version None)
Quarter: 2005Q1

REPORT INFORMATION
  Report Type: 
  Country: None (occurrence: None)
  Receive Date: 20050316
  Receipt Date: 20050303
  Transmission Date: 20050727
  Serious: Yes (Life-Threatening)
  Sender: FDA-Public Use
  Company Number: 2005040639

PATIENT
  Age: 53 Year
  Sex: Male
  Weight: 110 kg

DRUGS (4)
  1. CELEBREX [Suspect]
     Indication: OSTEOARTHRITIS
     Dosage: 400 MG (200 MG, 2 IN 1 D), ORAL
     Route: 048
     Dates: start: 20020523, end: 20041020
  2. HEPARIN-FRACTION, SODIUM SALT (HEPARIN-FRACTION, SODIUM SALT) [Concomitant]
  3. GABAPENTIN [Concomitant]
  4. RIZATRIPTAN BENZOATE (RIZATRIPTAN BENZOATE) [Concomitant]

REACTIONS (4)
  - ECHOCARDIOGRAM ABNORMAL [None]
  - ESSENTIAL HYPERTENSION [None]
  - VENTRICULAR DYSFUNCTION [None]
  - VENTRICULAR HYPERTROPHY [None]
